FAERS Safety Report 9417411 (Version 1)
Quarter: 2013Q3

REPORT INFORMATION
  Report Type: Spontaneous
  Country: IN (occurrence: IN)
  Receive Date: 20130719
  Receipt Date: 20130719
  Transmission Date: 20140515
  Serious: Yes (Other)
  Sender: FDA-Public Use
  Company Number: IMP_06740_2013

PATIENT
  Age: 60 Year
  Sex: Female

DRUGS (2)
  1. CABERGOLINE [Suspect]
     Indication: HYPERPROLACTINAEMIA
     Dosage: (DF)
  2. CABERGOLINE [Suspect]
     Indication: PITUITARY TUMOUR
     Dosage: (DF)

REACTIONS (5)
  - Abdominal discomfort [None]
  - Blood pressure increased [None]
  - Tricuspid valve incompetence [None]
  - Pulmonary arterial hypertension [None]
  - Right ventricular failure [None]
